FAERS Safety Report 24344551 (Version 1)
Quarter: 2024Q3

REPORT INFORMATION
  Report Type: Spontaneous
  Country: US (occurrence: US)
  Receive Date: 20240920
  Receipt Date: 20240920
  Transmission Date: 20241016
  Serious: Yes (Hospitalization)
  Sender: BIOVITRUM
  Company Number: US-BIOVITRUM-2024-US-012275

PATIENT
  Sex: Male

DRUGS (1)
  1. SYNAGIS [Suspect]
     Active Substance: PALIVIZUMAB
     Indication: Premature baby
     Dosage: EVERY 28DAYS -30DAYS
     Route: 030
     Dates: start: 20240730

REACTIONS (6)
  - Cough [Unknown]
  - Asthma [Unknown]
  - Pyrexia [Unknown]
  - Decreased appetite [Unknown]
  - Dehydration [Unknown]
  - Oxygen saturation decreased [Unknown]
